FAERS Safety Report 22193371 (Version 2)
Quarter: 2023Q2

REPORT INFORMATION
  Report Type: Spontaneous
  Country: JP (occurrence: JP)
  Receive Date: 20230410
  Receipt Date: 20230504
  Transmission Date: 20230722
  Serious: Yes (Other)
  Sender: FDA-Public Use
  Company Number: JP-ferring-EVA202300358FERRINGPH

PATIENT

DRUGS (3)
  1. PROGESTERONE [Suspect]
     Active Substance: PROGESTERONE
     Indication: In vitro fertilisation
     Dosage: 2 DOSAGE FORM, DAILY
     Route: 065
     Dates: start: 20230127, end: 20230203
  2. LUTORAL [Concomitant]
     Active Substance: CHLORMADINONE ACETATE
     Indication: Product used for unknown indication
     Route: 065
  3. ESTRADIOL [Concomitant]
     Active Substance: ESTRADIOL
     Indication: Product used for unknown indication
     Route: 065

REACTIONS (1)
  - Urticaria [Recovered/Resolved]

NARRATIVE: CASE EVENT DATE: 20230203
